FAERS Safety Report 22179527 (Version 4)
Quarter: 2024Q2

REPORT INFORMATION
  Report Type: Report from Study
  Country: AR (occurrence: AR)
  Receive Date: 20230406
  Receipt Date: 20240515
  Transmission Date: 20240715
  Serious: Yes (Hospitalization, Other)
  Sender: FDA-Public Use
  Company Number: AR-002147023-NVSC2023AR076298

PATIENT
  Age: 71 Year
  Sex: Female

DRUGS (3)
  1. COSENTYX [Suspect]
     Active Substance: SECUKINUMAB
     Indication: Psoriasis
     Dosage: 300 MG
     Route: 065
     Dates: start: 20191101
  2. COSENTYX [Suspect]
     Active Substance: SECUKINUMAB
     Indication: Psoriatic arthropathy
     Dosage: 150 MG, QMO
     Route: 065
     Dates: start: 201911
  3. COSENTYX [Suspect]
     Active Substance: SECUKINUMAB
     Dosage: 300 MG, QMO
     Route: 065
     Dates: start: 201911

REACTIONS (12)
  - Cerebrovascular accident [Unknown]
  - Psoriatic arthropathy [Not Recovered/Not Resolved]
  - Dengue fever [Unknown]
  - Internal haemorrhage [Unknown]
  - Colitis [Unknown]
  - Oral pain [Unknown]
  - Pyrexia [Unknown]
  - Vomiting [Unknown]
  - Abdominal pain upper [Unknown]
  - Psoriasis [Not Recovered/Not Resolved]
  - Memory impairment [Unknown]
  - Asthenia [Recovering/Resolving]

NARRATIVE: CASE EVENT DATE: 20221224
